FAERS Safety Report 5524279-8 (Version None)
Quarter: 2007Q4

REPORT INFORMATION
  Report Type: 
  Country: None (occurrence: None)
  Receive Date: 20071121
  Receipt Date: 20071114
  Transmission Date: 20080405
  Serious: Yes (Death, Hospitalization)
  Sender: FDA-Public Use
  Company Number: US-PFIZER INC-2007088404

PATIENT
  Sex: Male
  Weight: 106.6 kg

DRUGS (1)
  1. CELEBREX [Suspect]
     Indication: ARTHROPATHY
     Route: 048

REACTIONS (1)
  - PANCREATITIS NECROTISING [None]
